FAERS Safety Report 19894701 (Version 1)
Quarter: 2021Q3

REPORT INFORMATION
  Report Type: Spontaneous
  Country: US (occurrence: US)
  Receive Date: 20210929
  Receipt Date: 20210929
  Transmission Date: 20211014
  Serious: No
  Sender: FDA-Public Use
  Company Number: US-ASTRAZENECA-2021A726674

PATIENT
  Sex: Female
  Weight: 65.8 kg

DRUGS (1)
  1. BEVESPI AEROSPHERE [Suspect]
     Active Substance: FORMOTEROL FUMARATE\GLYCOPYRROLATE
     Indication: CHRONIC OBSTRUCTIVE PULMONARY DISEASE
     Route: 055

REACTIONS (5)
  - Wrong technique in product usage process [Unknown]
  - Inability to afford medication [Unknown]
  - Body height decreased [Not Recovered/Not Resolved]
  - Intentional device misuse [Unknown]
  - Device delivery system issue [Unknown]
